FAERS Safety Report 12499551 (Version 5)
Quarter: 2019Q3

REPORT INFORMATION
  Report Type: Report from Study
  Country: IT (occurrence: IT)
  Receive Date: 20160627
  Receipt Date: 20190912
  Transmission Date: 20191004
  Serious: Yes (Hospitalization, Other)
  Sender: FDA-Public Use
  Company Number: IT-PFIZER INC-2016309255

PATIENT
  Age: 66 Year
  Sex: Male

DRUGS (13)
  1. IRINOTECAN HCL [Suspect]
     Active Substance: IRINOTECAN HYDROCHLORIDE
     Dosage: 310 MG, CYCLIC
     Dates: start: 20160511, end: 20160511
  2. FLUOROURACIL. [Suspect]
     Active Substance: FLUOROURACIL
     Dosage: 700 MG, CYCLIC
     Route: 040
     Dates: start: 20160511, end: 20160511
  3. BETAMETHASONE. [Concomitant]
     Active Substance: BETAMETHASONE
  4. ATROPINE SULFATE. [Concomitant]
     Active Substance: ATROPINE SULFATE
  5. LEUCOVORINE [Suspect]
     Active Substance: LEUCOVORIN
     Indication: COLON CANCER METASTATIC
     Dosage: 378 MG, CYCLIC
     Route: 041
     Dates: start: 20151119, end: 20151119
  6. LEUCOVORINE [Suspect]
     Active Substance: LEUCOVORIN
     Dosage: 350 MG, CYCLIC
     Dates: start: 20160511, end: 20160511
  7. IRINOTECAN HCL [Suspect]
     Active Substance: IRINOTECAN HYDROCHLORIDE
     Indication: COLON CANCER METASTATIC
     Dosage: 340 MG, CYCLIC
     Route: 041
     Dates: start: 20151119, end: 20151119
  8. ZALTRAP [Suspect]
     Active Substance: ZIV-AFLIBERCEPT
     Indication: COLORECTAL CANCER METASTATIC
     Dosage: 320 MG, CYCLIC
     Route: 041
     Dates: start: 20151119, end: 20151119
  9. PALONOSETRON. [Concomitant]
     Active Substance: PALONOSETRON HYDROCHLORIDE
  10. ZALTRAP [Suspect]
     Active Substance: ZIV-AFLIBERCEPT
     Dosage: 270 MG, CYCLIC
     Route: 041
     Dates: start: 20160511, end: 20160511
  11. FLUOROURACIL. [Suspect]
     Active Substance: FLUOROURACIL
     Indication: COLON CANCER METASTATIC
     Dosage: 2268 MG, CYCLIC
     Route: 040
     Dates: start: 20151119, end: 20151119
  12. FLUOROURACIL. [Suspect]
     Active Substance: FLUOROURACIL
     Dosage: 756 MG, CYCLIC
     Dates: start: 20151119, end: 20151119
  13. FLUOROURACIL. [Suspect]
     Active Substance: FLUOROURACIL
     Dosage: 4200 MG, CYCLIC
     Dates: start: 20160511, end: 20160511

REACTIONS (5)
  - Vomiting [Recovered/Resolved]
  - Asthenia [Recovered/Resolved]
  - Abdominal pain [Recovered/Resolved]
  - Diarrhoea haemorrhagic [Recovered/Resolved]
  - Nausea [Recovered/Resolved]

NARRATIVE: CASE EVENT DATE: 20160515
